FAERS Safety Report 7530545-7 (Version None)
Quarter: 2011Q2

REPORT INFORMATION
  Report Type: 
  Country: None (occurrence: None)
  Receive Date: 20110607
  Receipt Date: 20110523
  Transmission Date: 20111010
  Serious: Yes (Death, Hospitalization)
  Sender: FDA-Public Use
  Company Number: TR-WATSON-2011-07264

PATIENT
  Age: 11 Year
  Sex: Male

DRUGS (2)
  1. PREDNISOLONE [Suspect]
     Indication: CROHN'S DISEASE
     Dosage: UNK
  2. AZATHIOPRINE [Suspect]
     Indication: CROHN'S DISEASE
     Dosage: UNK

REACTIONS (1)
  - HISTIOCYTOSIS HAEMATOPHAGIC [None]
